FAERS Safety Report 24888322 (Version 1)
Quarter: 2025Q1

REPORT INFORMATION
  Report Type: Spontaneous
  Country: US (occurrence: US)
  Receive Date: 20250127
  Receipt Date: 20250127
  Transmission Date: 20250408
  Serious: Yes (Other)
  Sender: TEVA
  Company Number: US-TEVA-VS-3288337

PATIENT
  Age: 57 Year
  Sex: Male

DRUGS (4)
  1. AUSTEDO [Suspect]
     Active Substance: DEUTETRABENAZINE
     Indication: Tardive dyskinesia
     Route: 065
     Dates: start: 20220101
  2. AUSTEDO [Suspect]
     Active Substance: DEUTETRABENAZINE
     Indication: Tardive dyskinesia
     Dosage: CURRENT DOSE
     Route: 065
  3. TRIHEXYPHENIDYL [Concomitant]
     Active Substance: TRIHEXYPHENIDYL
     Indication: Product used for unknown indication
  4. LORAZEPAM [Concomitant]
     Active Substance: LORAZEPAM
     Indication: Product used for unknown indication

REACTIONS (7)
  - Bipolar disorder [Unknown]
  - Product use issue [Unknown]
  - Depression [Unknown]
  - Parkinson^s disease [Recovered/Resolved]
  - Wrong technique in product usage process [Unknown]
  - Tardive dyskinesia [Recovered/Resolved]
  - Off label use [Unknown]

NARRATIVE: CASE EVENT DATE: 20240101
